FAERS Safety Report 5706125-2 (Version None)
Quarter: 2008Q2

REPORT INFORMATION
  Report Type: 
  Country: None (occurrence: None)
  Receive Date: 20080411
  Receipt Date: 20070510
  Transmission Date: 20081010
  Serious: Yes (Other)
  Sender: FDA-Public Use
  Company Number: 2007RR-13252

PATIENT
  Age: 70 Year
  Sex: Male

DRUGS (5)
  1. SIMVASTATIN [Suspect]
     Indication: PROPHYLAXIS
     Dosage: 120 MG, ORAL
     Route: 048
     Dates: start: 20061221, end: 20070401
  2. AMLODIPINE [Concomitant]
  3. ATENOLOL TABLETS BP 50MG (ATENOLOL) UNKNOWN [Concomitant]
  4. ATORVASTATIN CALCIUM [Concomitant]
  5. PERINDOPRIL ERBUMINE [Concomitant]

REACTIONS (5)
  - CHEST PAIN [None]
  - HYPERHIDROSIS [None]
  - MALAISE [None]
  - MUSCULAR WEAKNESS [None]
  - NAUSEA [None]
